FAERS Safety Report 16077819 (Version 3)
Quarter: 2019Q2

REPORT INFORMATION
  Report Type: Spontaneous
  Country: US (occurrence: US)
  Receive Date: 20190315
  Receipt Date: 20190419
  Transmission Date: 20190711
  Serious: Yes (Other)
  Sender: FDA-Public Use
  Company Number: US-JNJFOC-20190311359

PATIENT
  Sex: Female

DRUGS (11)
  1. NEURONTIN [Concomitant]
     Active Substance: GABAPENTIN
     Route: 065
  2. REMICADE [Suspect]
     Active Substance: INFLIXIMAB
     Indication: PRODUCT USED FOR UNKNOWN INDICATION
     Route: 042
  3. CODEINE PHOSPHATE [Concomitant]
     Active Substance: CODEINE PHOSPHATE
     Route: 065
  4. HUMIRA [Suspect]
     Active Substance: ADALIMUMAB
     Indication: PRODUCT USED FOR UNKNOWN INDICATION
     Route: 058
  5. QUINACRINE HYDROCHLORIDE [Concomitant]
     Active Substance: QUINACRINE HYDROCHLORIDE
     Route: 065
  6. ANASTROZOLE. [Concomitant]
     Active Substance: ANASTROZOLE
     Route: 065
  7. ORENCIA [Suspect]
     Active Substance: ABATACEPT
     Indication: PRODUCT USED FOR UNKNOWN INDICATION
     Route: 065
  8. ASPIRIN. [Concomitant]
     Active Substance: ASPIRIN
     Route: 065
  9. RITUXAN [Concomitant]
     Active Substance: RITUXIMAB
     Route: 065
  10. ENBREL [Suspect]
     Active Substance: ETANERCEPT
     Indication: PRODUCT USED FOR UNKNOWN INDICATION
     Route: 065
  11. METHOTREXATE. [Concomitant]
     Active Substance: METHOTREXATE
     Route: 065

REACTIONS (1)
  - Breast cancer [Unknown]
